FAERS Safety Report 21011748 (Version 1)
Quarter: 2022Q2

REPORT INFORMATION
  Report Type: Spontaneous
  Country: FR (occurrence: FR)
  Receive Date: 20220627
  Receipt Date: 20220627
  Transmission Date: 20220721
  Serious: Yes (Hospitalization, Other)
  Sender: FDA-Public Use
  Company Number: FR-BAXTER-2022BAX011697

PATIENT
  Age: 69 Year
  Sex: Male
  Weight: 90 kg

DRUGS (21)
  1. RITUXIMAB [Suspect]
     Active Substance: RITUXIMAB
     Dosage: 20 MG, 1X/DAY
     Route: 041
     Dates: start: 20220412, end: 20220412
  2. METHYLPREDNISOLONE SODIUM SUCCINATE [Suspect]
     Active Substance: METHYLPREDNISOLONE SODIUM SUCCINATE
     Indication: Hormone therapy
     Dosage: 40 MG, DAILY
     Route: 042
     Dates: start: 20220409, end: 20220412
  3. LINEZOLID [Suspect]
     Active Substance: LINEZOLID
     Indication: Lung disorder
     Dosage: 600 MG, 2X/DAY
     Route: 041
     Dates: start: 20220407, end: 20220414
  4. CIPROFLOXACIN [Suspect]
     Active Substance: CIPROFLOXACIN
     Indication: Lung disorder
     Dosage: 200 MG, QD
     Route: 041
     Dates: start: 20220402, end: 20220422
  5. TRAMADOL [Suspect]
     Active Substance: TRAMADOL
     Indication: Analgesic therapy
     Dosage: 50 MG, 3X/DAY
     Route: 048
     Dates: start: 20220328, end: 20220408
  6. METRONIDAZOLE [Suspect]
     Active Substance: METRONIDAZOLE
     Indication: Tooth infection
     Dosage: 500 MG, 3X/DAY
     Route: 041
     Dates: start: 20220329, end: 20220405
  7. ATORVASTATIN [Concomitant]
     Active Substance: ATORVASTATIN
  8. ALLOPURINOL [Concomitant]
     Active Substance: ALLOPURINOL
  9. RISPERIDONE [Concomitant]
     Active Substance: RISPERIDONE
  10. ENALAPRIL MALEATE [Concomitant]
     Active Substance: ENALAPRIL MALEATE
  11. MORPHINE [Concomitant]
     Active Substance: MORPHINE
  12. DORZOLAMIDE [Concomitant]
     Active Substance: DORZOLAMIDE
  13. OXYCODONE [Concomitant]
     Active Substance: OXYCODONE
  14. TRANEXAMIC ACID [Concomitant]
     Active Substance: TRANEXAMIC ACID
  15. FUROSEMIDE [Concomitant]
     Active Substance: FUROSEMIDE
  16. PIPERACILLIN SODIUM\TAZOBACTAM SODIUM [Concomitant]
     Active Substance: PIPERACILLIN SODIUM\TAZOBACTAM SODIUM
  17. ROSUVASTATIN [Concomitant]
     Active Substance: ROSUVASTATIN
  18. PIRACETAM [Concomitant]
     Active Substance: PIRACETAM
  19. CLOBAZAM [Concomitant]
     Active Substance: CLOBAZAM
  20. FLUCONAZOLE [Concomitant]
     Active Substance: FLUCONAZOLE
  21. TERBUTALINE [Concomitant]
     Active Substance: TERBUTALINE

REACTIONS (3)
  - Hepatic cytolysis [Not Recovered/Not Resolved]
  - Leukopenia [Not Recovered/Not Resolved]
  - Cholestasis [Not Recovered/Not Resolved]

NARRATIVE: CASE EVENT DATE: 20220412
